FAERS Safety Report 5488958-3 (Version None)
Quarter: 2007Q4

REPORT INFORMATION
  Report Type: 
  Country: None (occurrence: None)
  Receive Date: 20071016
  Receipt Date: 20071001
  Transmission Date: 20080405
  Serious: Yes (Disabling)
  Sender: FDA-Public Use
  Company Number: 2007S1009239

PATIENT
  Age: 72 Year
  Sex: Male

DRUGS (1)
  1. ACYCLOVIR [Suspect]
     Dosage: OPHTHALMIC;
     Route: 047
     Dates: start: 20070614, end: 20070617

REACTIONS (5)
  - DRUG DISPENSING ERROR [None]
  - INCORRECT ROUTE OF DRUG ADMINISTRATION [None]
  - INTENTIONAL DRUG MISUSE [None]
  - KERATITIS [None]
  - VISUAL ACUITY REDUCED [None]
